FAERS Safety Report 4284127-3 (Version None)
Quarter: 2004Q1

REPORT INFORMATION
  Report Type: 
  Country: None (occurrence: None)
  Receive Date: 20040203
  Receipt Date: 20020418
  Transmission Date: 20041129
  Serious: Yes (Hospitalization)
  Sender: FDA-Public Use
  Company Number: US-GLAXOSMITHKLINE-A0366454A

PATIENT
  Age: 54 Year
  Sex: Female

DRUGS (12)
  1. AVANDIA [Suspect]
     Indication: DIABETES MELLITUS NON-INSULIN-DEPENDENT
     Route: 048
     Dates: start: 20000701, end: 20020408
  2. LOTENSIN [Concomitant]
     Dosage: 20MG PER DAY
     Route: 048
  3. TOPROL-XL [Concomitant]
     Dosage: 100MG PER DAY
     Route: 048
  4. TOLAZAMIDE [Concomitant]
     Dosage: 250MG TWICE PER DAY
     Route: 048
  5. GLUCOPHAGE [Concomitant]
     Dosage: 850MG THREE TIMES PER DAY
     Route: 048
  6. LIPITOR [Concomitant]
     Dosage: 40MG PER DAY
     Route: 048
  7. ASPIRIN [Concomitant]
     Dosage: 81MG PER DAY
     Route: 048
  8. SOMA [Concomitant]
     Dosage: 350MG AS REQUIRED
     Route: 048
  9. VICODIN [Concomitant]
     Dosage: 750MG THREE TIMES PER DAY
     Route: 048
  10. NORTRIPTYLINE HCL [Concomitant]
     Dosage: 20MG PER DAY
  11. QUININE SULFATE [Concomitant]
     Dosage: 325MG PER DAY
     Route: 048
  12. VIOXX [Concomitant]
     Dosage: 25MG PER DAY
     Route: 048

REACTIONS (23)
  - ACUTE PULMONARY OEDEMA [None]
  - ATRIAL FIBRILLATION [None]
  - ATRIOVENTRICULAR BLOCK FIRST DEGREE [None]
  - BUNDLE BRANCH BLOCK LEFT [None]
  - CARDIAC ARREST [None]
  - CARDIAC DISORDER [None]
  - CARDIAC FAILURE CONGESTIVE [None]
  - CHEST DISCOMFORT [None]
  - COLD SWEAT [None]
  - COMA [None]
  - CYANOSIS [None]
  - DIZZINESS [None]
  - HEART INJURY [None]
  - HEART RATE INCREASED [None]
  - HEART RATE IRREGULAR [None]
  - HYPERGLYCAEMIA [None]
  - HYPERHIDROSIS [None]
  - HYPERTENSIVE CRISIS [None]
  - PARALYSIS [None]
  - RESPIRATORY FAILURE [None]
  - TACHYARRHYTHMIA [None]
  - TROPONIN INCREASED [None]
  - VENTRICULAR TACHYCARDIA [None]
